FAERS Safety Report 18436799 (Version 4)
Quarter: 2021Q2

REPORT INFORMATION
  Report Type: Spontaneous
  Country: US (occurrence: US)
  Receive Date: 20201028
  Receipt Date: 20210528
  Transmission Date: 20210717
  Serious: Yes (Other)
  Sender: FDA-Public Use
  Company Number: US-PFIZER INC-2020416226

PATIENT
  Age: 56 Year
  Sex: Female

DRUGS (5)
  1. MEKTOVI [Suspect]
     Active Substance: BINIMETINIB
     Dosage: 45 MG
  2. BENADRYL [Concomitant]
     Active Substance: DIPHENHYDRAMINE HYDROCHLORIDE
  3. BRAFTOVI [Suspect]
     Active Substance: ENCORAFENIB
     Dosage: 300 MG
  4. DILANTIN [Concomitant]
     Active Substance: PHENYTOIN
     Indication: SEIZURE
     Dosage: UNK
  5. KEPPRA [Concomitant]
     Active Substance: LEVETIRACETAM
     Indication: SEIZURE
     Dosage: UNK

REACTIONS (10)
  - Abdominal pain upper [Unknown]
  - Weight increased [Unknown]
  - Brain neoplasm malignant [Unknown]
  - Depression [Unknown]
  - Second primary malignancy [Unknown]
  - Memory impairment [Unknown]
  - Fatigue [Unknown]
  - Laziness [Unknown]
  - Sluggishness [Unknown]
  - Hypersensitivity [Unknown]
